FAERS Safety Report 8122443-5 (Version None)
Quarter: 2012Q1

REPORT INFORMATION
  Report Type: 
  Country: None (occurrence: None)
  Receive Date: 20120207
  Receipt Date: 20120207
  Transmission Date: 20120608
  Serious: Yes (Disabling, Other)
  Sender: FDA-Public Use
  Company Number: None

PATIENT
  Sex: Female
  Weight: 86.1834 kg

DRUGS (1)
  1. ALCOHOL SWABS/W/BENZOCAINE [Suspect]
     Indication: WOUND TREATMENT
     Dosage: FOIL PACKETS 11/11/2010 APPLIED TO KNEE AREA EXCLUDING SURGICAL
     Dates: start: 20101130

REACTIONS (12)
  - MOBILITY DECREASED [None]
  - RASH [None]
  - JOINT ADHESION [None]
  - PRURITUS [None]
  - PAIN IN EXTREMITY [None]
  - OEDEMA PERIPHERAL [None]
  - URTICARIA [None]
  - INFECTION [None]
  - INFLAMMATION [None]
  - ARTHRALGIA [None]
  - MENTAL DISORDER [None]
  - PRODUCT QUALITY ISSUE [None]
